FAERS Safety Report 5153316-8 (Version None)
Quarter: 2006Q4

REPORT INFORMATION
  Report Type: 
  Country: None (occurrence: None)
  Receive Date: 20061116
  Receipt Date: 20061116
  Transmission Date: 20070319
  Serious: Yes (Life-Threatening, Hospitalization)
  Sender: FDA-Public Use
  Company Number: None

PATIENT
  Age: 58 Year
  Sex: Male
  Weight: 84.5 kg

DRUGS (4)
  1. HEPARIN [Suspect]
     Indication: PERIPHERAL VASCULAR DISORDER
     Dosage: 1250 UNITS  1 HOUR  IV DRIP
     Route: 041
     Dates: start: 20060726, end: 20060727
  2. HEPARIN [Suspect]
     Indication: PROPHYLAXIS
     Dosage: 1250 UNITS  1 HOUR  IV DRIP
     Route: 041
     Dates: start: 20060726, end: 20060727
  3. CYCLOSPORINE [Concomitant]
  4. SIROLIMUS [Concomitant]

REACTIONS (4)
  - BLOOD BILIRUBIN INCREASED [None]
  - HEPARIN-INDUCED THROMBOCYTOPENIA [None]
  - MUSCLE HAEMORRHAGE [None]
  - TRANSAMINASES INCREASED [None]
